FAERS Safety Report 6801680-3 (Version None)
Quarter: 2010Q2

REPORT INFORMATION
  Report Type: 
  Country: None (occurrence: None)
  Receive Date: 20100629
  Receipt Date: 20100621
  Transmission Date: 20101027
  Serious: Yes (Other)
  Sender: FDA-Public Use
  Company Number: NL-ABBOTT-10P-114-0652624-00

PATIENT
  Age: 15 Year
  Sex: Male

DRUGS (7)
  1. ERYTHROMYCIN [Suspect]
     Indication: HELICOBACTER INFECTION
  2. CLARITHROMYCIN [Suspect]
     Indication: CAMPYLOBACTER INFECTION
  3. AMOXICILLIN [Suspect]
     Indication: HELICOBACTER INFECTION
  4. MEROPENEM [Suspect]
     Indication: HELICOBACTER INFECTION
  5. OMEPRAZOLE [Suspect]
     Indication: HELICOBACTER INFECTION
  6. COTRIM [Concomitant]
     Indication: HYPOGAMMAGLOBULINAEMIA
  7. IMMUNE GLOBULIN NOS [Concomitant]
     Indication: HYPOGAMMAGLOBULINAEMIA
     Route: 042

REACTIONS (6)
  - ACQUIRED GENE MUTATION [None]
  - BACTERAEMIA [None]
  - CAMPYLOBACTER INFECTION [None]
  - DECREASED APPETITE [None]
  - DRUG RESISTANCE [None]
  - WEIGHT DECREASED [None]
